FAERS Safety Report 4897959-5 (Version None)
Quarter: 2006Q1

REPORT INFORMATION
  Report Type: 
  Country: None (occurrence: None)
  Receive Date: 20060201
  Receipt Date: 20060117
  Transmission Date: 20060701
  Serious: Yes (Disabling)
  Sender: FDA-Public Use
  Company Number: PHHO2006BE01079

PATIENT
  Age: 38 Year
  Sex: Male
  Weight: 53 kg

DRUGS (1)
  1. DESFERAL [Suspect]
     Indication: HAEMOSIDEROSIS
     Dosage: 1500 MG
     Route: 048
     Dates: start: 20040729

REACTIONS (1)
  - DEPRESSION [None]
